FAERS Safety Report 4916757-7 (Version None)
Quarter: 2006Q1

REPORT INFORMATION
  Report Type: 
  Country: None (occurrence: None)
  Receive Date: 20060214
  Receipt Date: 20060201
  Transmission Date: 20060701
  Serious: Yes (Death)
  Sender: FDA-Public Use
  Company Number: 2005160620

PATIENT
  Age: 77 Year
  Sex: Female
  Weight: 67 kg

DRUGS (8)
  1. VFEND [Suspect]
     Indication: BRONCHOPULMONARY ASPERGILLOSIS
     Dosage: 400 MG INTRAVENOUS; 400 MG INTRAVENOUS; 200 MG
     Route: 042
     Dates: start: 20051011, end: 20051022
  2. ITRACONAZOLE [Concomitant]
  3. CASPOFUNGIN ACETATE (CASPOFUNGIN ACETATE) [Concomitant]
  4. GABAPENTIN [Concomitant]
  5. FLUCONAZOLE [Concomitant]
  6. COTRIM [Concomitant]
  7. FOLIC ACID [Concomitant]
  8. VALACICLOVIR HYDROCHLORIDE          (VALACICLOVIR HYDROCHLORIDE) [Concomitant]

REACTIONS (4)
  - HEPATIC ENCEPHALOPATHY [None]
  - HEPATITIS FULMINANT [None]
  - HERPES VIRUS INFECTION [None]
  - PANCYTOPENIA [None]
